FAERS Safety Report 5038141-0 (Version None)
Quarter: 2006Q2

REPORT INFORMATION
  Report Type: 
  Country: None (occurrence: None)
  Receive Date: 20060626
  Receipt Date: 20060607
  Transmission Date: 20061013
  Serious: Yes (Hospitalization)
  Sender: FDA-Public Use
  Company Number: 2006PV015240

PATIENT
  Age: 62 Year
  Sex: Male
  Weight: 136.0791 kg

DRUGS (25)
  1. BYETTA [Suspect]
     Indication: DIABETES MELLITUS NON-INSULIN-DEPENDENT
     Dosage: 5 MCG; SC
     Route: 058
     Dates: start: 20060429
  2. NITROSTAT [Concomitant]
  3. ECOTRIN [Concomitant]
  4. COREG [Concomitant]
  5. PLAVIX [Concomitant]
  6. NIFEREX [Concomitant]
  7. ALLEGRA [Concomitant]
  8. APRESOLINE [Concomitant]
  9. NOVOLOG [Concomitant]
  10. LANTUS [Concomitant]
  11. AVAPRO [Concomitant]
  12. MULTIVITAMIN [Concomitant]
  13. PROTONIX [Concomitant]
  14. MIRALAX [Concomitant]
  15. FLOMAX [Concomitant]
  16. DEMODEX [Concomitant]
  17. NASACORT AQ [Concomitant]
  18. ADVAIR DISKUS 100/50 [Concomitant]
  19. PROVENTIL [Concomitant]
  20. TYLENOL (CAPLET) [Concomitant]
  21. NEXIUM [Concomitant]
  22. CELEBREX [Concomitant]
  23. VIAGRA [Concomitant]
  24. NORVASC [Concomitant]
  25. UNIVASC [Concomitant]

REACTIONS (6)
  - CONFUSIONAL STATE [None]
  - HYPOGLYCAEMIA [None]
  - INCORRECT DOSE ADMINISTERED [None]
  - LETHARGY [None]
  - OVERDOSE [None]
  - RESPIRATORY FAILURE [None]
